FAERS Safety Report 7406636-8 (Version None)
Quarter: 2011Q2

REPORT INFORMATION
  Report Type: 
  Country: None (occurrence: None)
  Receive Date: 20110411
  Receipt Date: 20110406
  Transmission Date: 20111010
  Serious: Yes (Hospitalization, Disabling, Other)
  Sender: FDA-Public Use
  Company Number: US-ABBOTT-11P-163-0700080-00

PATIENT
  Age: 74 Year
  Sex: Male
  Weight: 84.172 kg

DRUGS (4)
  1. SUTENT [Suspect]
     Dates: start: 20101221
  2. SYNTHROID [Suspect]
     Indication: BLOOD THYROID STIMULATING HORMONE INCREASED
     Route: 048
     Dates: start: 20100101
  3. SUTENT [Suspect]
     Indication: PROSTATE CANCER METASTATIC
     Dates: start: 20101122, end: 20101222
  4. TAMSULOSIN HYDROCHLORIDE [Suspect]
     Indication: BENIGN PROSTATIC HYPERPLASIA
     Route: 048
     Dates: start: 20100801

REACTIONS (1)
  - GASTRITIS [None]
